FAERS Safety Report 6031102-4 (Version None)
Quarter: 2009Q1

REPORT INFORMATION
  Report Type: 
  Country: None (occurrence: None)
  Receive Date: 20090108
  Receipt Date: 20081230
  Transmission Date: 20090719
  Serious: Yes (Hospitalization)
  Sender: FDA-Public Use
  Company Number: FR-PFIZER INC-2009151130

PATIENT

DRUGS (3)
  1. FLUCONAZOLE [Suspect]
     Dosage: 100 MG, 2X/DAY
     Route: 048
     Dates: start: 20081015, end: 20081015
  2. FLUCONAZOLE [Suspect]
     Dosage: 100 MG, 1X/DAY
     Dates: start: 20081016, end: 20081022
  3. MICONAZOLE NITRATE [Suspect]
     Dates: start: 20081015, end: 20081022

REACTIONS (1)
  - LOSS OF CONSCIOUSNESS [None]
